FAERS Safety Report 10538811 (Version 2)
Quarter: 2014Q4

REPORT INFORMATION
  Report Type: Report from Study
  Country: US (occurrence: US)
  Receive Date: 20141023
  Receipt Date: 20141112
  Transmission Date: 20150529
  Serious: Yes (Hospitalization)
  Sender: FDA-Public Use
  Company Number: US-ACTELION-A-NJ2014-106856

PATIENT
  Age: 19 Month
  Sex: Male

DRUGS (2)
  1. SILDENAFIL. [Concomitant]
     Active Substance: SILDENAFIL
  2. TRACLEER [Suspect]
     Active Substance: BOSENTAN\BOSENTAN MONOHYDRATE
     Indication: PULMONARY ARTERIAL HYPERTENSION
     Dosage: UNK
     Route: 048

REACTIONS (7)
  - Pulmonary arterial hypertension [Unknown]
  - Cough [Unknown]
  - Grunting [Unknown]
  - Enterovirus infection [Unknown]
  - Pyrexia [Unknown]
  - Skin discolouration [Unknown]
  - Tachycardia [Unknown]
